FAERS Safety Report 20591830 (Version 1)
Quarter: 2022Q1

REPORT INFORMATION
  Report Type: Spontaneous
  Country: CA (occurrence: CA)
  Receive Date: 20220314
  Receipt Date: 20220314
  Transmission Date: 20220423
  Serious: Yes (Other)
  Sender: FDA-Public Use
  Company Number: CA-PFIZER INC-202200372932

PATIENT
  Age: 79 Year
  Sex: Female

DRUGS (2)
  1. XELJANZ [Suspect]
     Active Substance: TOFACITINIB CITRATE
     Dosage: 5MG ORAL TWICE DAILY
     Route: 048
     Dates: start: 201911, end: 20210419
  2. SULFASALAZINE [Concomitant]
     Active Substance: SULFASALAZINE
     Dosage: 1.5 G
     Route: 048

REACTIONS (4)
  - Cerebrovascular accident [Unknown]
  - Neoplasm malignant [Unknown]
  - Coronary artery disease [Unknown]
  - Oedema peripheral [Unknown]
